FAERS Safety Report 8846625 (Version 1)
Quarter: 2012Q4

REPORT INFORMATION
  Report Type: 
  Country: US (occurrence: US)
  Receive Date: 20121017
  Receipt Date: 20121017
  Transmission Date: 20130627
  Serious: No
  Sender: FDA-Public Use
  Company Number: US-VERTEX PHARMACEUTICAL INC.-2012-022612

PATIENT
  Age: 55 Year
  Sex: Female
  Weight: 50 kg

DRUGS (6)
  1. INCIVEK [Suspect]
     Indication: HEPATITIS C
     Dosage: 750 mg, tid
     Route: 048
     Dates: start: 20121005
  2. RIBAPAK [Suspect]
     Indication: HEPATITIS C
     Dosage: 1 DF, bid
     Route: 048
     Dates: start: 20121005
  3. PEGINTRON                          /01543001/ [Suspect]
     Indication: HEPATITIS C
     Dosage: 180 ?g, qw
     Route: 058
     Dates: start: 20121005
  4. TRIZIVIR [Concomitant]
     Indication: HIV TEST POSITIVE
  5. EXCEDRIN                           /00110301/ [Concomitant]
     Indication: HEADACHE
     Dosage: UNK, prn
     Route: 048
  6. EXCEDRIN                           /00110301/ [Concomitant]
     Indication: PAIN

REACTIONS (3)
  - Pyrexia [Recovered/Resolved]
  - Back pain [Recovered/Resolved]
  - Off label use [Unknown]
